FAERS Safety Report 18252778 (Version 1)
Quarter: 2020Q3

REPORT INFORMATION
  Report Type: Spontaneous
  Country: US (occurrence: US)
  Receive Date: 20200910
  Receipt Date: 20200910
  Transmission Date: 20201103
  Serious: Yes (Life-Threatening, Hospitalization, Disabling)
  Sender: FDA-Public Use
  Company Number: None

PATIENT
  Sex: Male
  Weight: 58.97 kg

DRUGS (1)
  1. ABILIFY [Suspect]
     Active Substance: ARIPIPRAZOLE
     Indication: ANXIETY
     Dosage: ?          OTHER STRENGTH:5MG TO 10MG;?
     Route: 048
     Dates: start: 2006, end: 201712

REACTIONS (20)
  - Urinary retention [None]
  - Dizziness [None]
  - Feeling cold [None]
  - Vomiting [None]
  - Electric shock [None]
  - Headache [None]
  - Rheumatoid arthritis [None]
  - Neuroleptic malignant syndrome [None]
  - Hyperhidrosis [None]
  - Anger [None]
  - Abdominal pain upper [None]
  - Serotonin syndrome [None]
  - Blood pressure decreased [None]
  - White blood cell count [None]
  - Feeling abnormal [None]
  - Vision blurred [None]
  - Arthropod bite [None]
  - Hypoaesthesia [None]
  - Tardive dyskinesia [None]
  - Fibromyalgia [None]
